FAERS Safety Report 10896735 (Version 1)
Quarter: 2015Q1

REPORT INFORMATION
  Report Type: Spontaneous
  Country: US (occurrence: None)
  Receive Date: 20150302
  Receipt Date: 20150302
  Transmission Date: 20150721
  Serious: No
  Sender: FDA-Public Use
  Company Number: None

PATIENT
  Age: 37 Year
  Sex: Female
  Weight: 59 kg

DRUGS (13)
  1. OXYCODONE [Concomitant]
     Active Substance: OXYCODONE
  2. LOVENOX [Concomitant]
     Active Substance: ENOXAPARIN SODIUM
  3. LEVOTHYROXINE SODIUM. [Concomitant]
     Active Substance: LEVOTHYROXINE SODIUM
  4. TRAMADOL [Concomitant]
     Active Substance: TRAMADOL
  5. TRAMETINIB DIMETHYL SULFOXIDE [Concomitant]
     Active Substance: TRAMETINIB DIMETHYL SULFOXIDE
  6. VOLTAREN [Concomitant]
     Active Substance: DICLOFENAC SODIUM
  7. ALPRAZOLAM. [Concomitant]
     Active Substance: ALPRAZOLAM
  8. DABREFENIB 75MG [Suspect]
     Active Substance: DABRAFENIB
     Indication: METASTATIC MALIGNANT MELANOMA
     Dosage: 1 CAPSULE  BID  ORAL
     Route: 048
  9. CLONAZEPAM. [Concomitant]
     Active Substance: CLONAZEPAM
  10. PROMETHAZINE [Concomitant]
     Active Substance: PROMETHAZINE\PROMETHAZINE HYDROCHLORIDE
  11. TRAMETINIB [Suspect]
     Active Substance: TRAMETINIB
     Indication: METASTATIC MALIGNANT MELANOMA
     Dosage: 1 TABLET QHS BEDTIME ORAL
     Route: 048
     Dates: start: 20141210, end: 20141227
  12. DABRAFENIB MESYLATE [Concomitant]
     Active Substance: DABRAFENIB MESYLATE
  13. ETHYL ALC-ISOPRPAIC-MTHALC-MIK LIQD [Concomitant]

REACTIONS (2)
  - Nail bed disorder [None]
  - Onychoclasis [None]

NARRATIVE: CASE EVENT DATE: 20150227
